FAERS Safety Report 19370724 (Version 1)
Quarter: 2021Q2

REPORT INFORMATION
  Report Type: Spontaneous
  Country: US (occurrence: US)
  Receive Date: 20210603
  Receipt Date: 20210603
  Transmission Date: 20210717
  Serious: Yes (Hospitalization)
  Sender: FDA-Public Use
  Company Number: US-STANDARD HOMEOPATHIC-2112304

PATIENT
  Sex: Female

DRUGS (1)
  1. HYLAND^S LEG CRAMPS CAPLETS [Suspect]
     Active Substance: HOMEOPATHICS
     Indication: MUSCULOSKELETAL STIFFNESS
     Route: 048
     Dates: end: 20210428

REACTIONS (1)
  - Hyperkalaemia [Unknown]

NARRATIVE: CASE EVENT DATE: 20210428
